FAERS Safety Report 9422552 (Version 1)
Quarter: 2013Q3

REPORT INFORMATION
  Report Type: Spontaneous
  Country: US (occurrence: None)
  Receive Date: 20130715
  Receipt Date: 20130715
  Transmission Date: 20140515
  Serious: Yes (Hospitalization, Other)
  Sender: FDA-Public Use
  Company Number: 2013036834

PATIENT
  Sex: Female
  Weight: 43.09 kg

DRUGS (1)
  1. ZEMAIRA [Suspect]

REACTIONS (1)
  - Investigation [None]
